FAERS Safety Report 4650608-3 (Version None)
Quarter: 2005Q2

REPORT INFORMATION
  Report Type: 
  Country: None (occurrence: None)
  Receive Date: 20050503
  Receipt Date: 20050422
  Transmission Date: 20051028
  Serious: Yes (Other)
  Sender: FDA-Public Use
  Company Number: US-JNJFOC-20050405699

PATIENT
  Sex: Female
  Weight: 37.2 kg

DRUGS (9)
  1. REMICADE [Suspect]
     Route: 042
  2. REMICADE [Suspect]
     Route: 042
  3. REMICADE [Suspect]
     Indication: RHEUMATOID ARTHRITIS
     Route: 042
  4. PREDNISONE [Concomitant]
     Indication: RHEUMATOID ARTHRITIS
  5. PLAQUENIL [Concomitant]
     Indication: RHEUMATOID ARTHRITIS
  6. METHOTREXATE [Concomitant]
     Indication: RHEUMATOID ARTHRITIS
  7. TOPRIL [Concomitant]
  8. FOLIC ACID [Concomitant]
  9. ACTONEL [Concomitant]
     Indication: OSTEOARTHRITIS

REACTIONS (3)
  - BASAL CELL CARCINOMA [None]
  - CATARACT [None]
  - HORDEOLUM [None]
